FAERS Safety Report 14347350 (Version 1)
Quarter: 2018Q1

REPORT INFORMATION
  Report Type: Spontaneous
  Country: US (occurrence: US)
  Receive Date: 20180102
  Receipt Date: 20180102
  Transmission Date: 20180509
  Serious: Yes (Other)
  Sender: FDA-Public Use
  Company Number: None

PATIENT
  Age: 82 Year
  Sex: Female
  Weight: 80.1 kg

DRUGS (10)
  1. PANTOTHENIC ACID [Concomitant]
     Active Substance: PANTOTHENIC ACID
  2. CARVEDILOL. [Concomitant]
     Active Substance: CARVEDILOL
  3. AMLODIPINE BESYLATE. [Concomitant]
     Active Substance: AMLODIPINE BESYLATE
  4. VITAMIN C [Concomitant]
     Active Substance: ASCORBIC ACID
  5. VALSARTAN AND HYDROCHLOROTHIAZIDE [Concomitant]
     Active Substance: HYDROCHLOROTHIAZIDE\VALSARTAN
  6. MAGNESIUM [Concomitant]
     Active Substance: MAGNESIUM
  7. MULTI-VITAMIN [Concomitant]
     Active Substance: .ALPHA.-TOCOPHEROL ACETATE, DL-\ASCORBIC ACID\CYANOCOBALAMIN\FLUORIDE ION\FOLIC ACID\NIACIN\PYRIDOXINE\RIBOFLAVIN\THIAMINE\VITAMIN A\VITAMIN D
  8. POTASSIUM [Concomitant]
     Active Substance: POTASSIUM
  9. LOSARTAN/HCTZ [Suspect]
     Active Substance: HYDROCHLOROTHIAZIDE\LOSARTAN
     Indication: BLOOD PRESSURE MEASUREMENT
     Dosage: ?          QUANTITY:1 TABLET(S);?
     Route: 048
     Dates: start: 20171025, end: 20171214
  10. VITAMIN D3 [Concomitant]
     Active Substance: CHOLECALCIFEROL

REACTIONS (10)
  - Vision blurred [None]
  - Nausea [None]
  - Myalgia [None]
  - Malaise [None]
  - Loss of personal independence in daily activities [None]
  - Drug ineffective [None]
  - Balance disorder [None]
  - Blood pressure systolic increased [None]
  - Feeling abnormal [None]
  - Product formulation issue [None]

NARRATIVE: CASE EVENT DATE: 20171201
